FAERS Safety Report 17472498 (Version 1)
Quarter: 2020Q1

REPORT INFORMATION
  Report Type: Other
  Country: FR (occurrence: FR)
  Receive Date: 20200228
  Receipt Date: 20200228
  Transmission Date: 20200409
  Serious: Yes (Hospitalization, Other)
  Sender: FDA-Public Use
  Company Number: FR-APOTEX-2020AP008179

PATIENT
  Age: 77 Year
  Sex: Female

DRUGS (15)
  1. LOVENOX [Interacting]
     Active Substance: ENOXAPARIN SODIUM
     Indication: THROMBOSIS PROPHYLAXIS
     Dosage: 4000 IU, QD
     Route: 058
     Dates: start: 20200113
  2. XANAX [Concomitant]
     Active Substance: ALPRAZOLAM
     Indication: ANXIETY
     Dosage: 1 MG, QD
     Route: 048
  3. TAMIFLU [Concomitant]
     Active Substance: OSELTAMIVIR PHOSPHATE
     Indication: INFLUENZA
     Dosage: 150 MG, QD
     Route: 048
     Dates: start: 20200114, end: 20200115
  4. CARBOPLATINE [Suspect]
     Active Substance: CARBOPLATIN
     Indication: ANAL CANCER
     Dosage: UNK
     Route: 042
     Dates: start: 20191112, end: 20191112
  5. IMOVANE [Concomitant]
     Active Substance: ZOPICLONE
     Indication: SLEEP DISORDER
     Dosage: 7.5 MG, QD
     Route: 048
  6. ROVAMYCINE                         /00074401/ [Concomitant]
     Active Substance: SPIRAMYCIN
     Indication: PNEUMONIA
     Dosage: 1.5 MILLION IU, QD
     Route: 065
     Dates: start: 20200114, end: 20200115
  7. AMETYCINE [Suspect]
     Active Substance: MITOMYCIN
     Indication: ANAL CANCER
     Dosage: 20 MG, Q.M.T. (MONTHLY)
     Route: 042
     Dates: start: 20190909, end: 20191007
  8. CEFTRIAXONE. [Concomitant]
     Active Substance: CEFTRIAXONE
     Indication: PNEUMONIA
     Dosage: 1 G, QD
     Route: 065
     Dates: start: 20200111, end: 20200117
  9. INIPOMP [Concomitant]
     Active Substance: PANTOPRAZOLE SODIUM
     Indication: PRODUCT USED FOR UNKNOWN INDICATION
     Dosage: 40 MG, QD
     Route: 048
  10. FLUOROURACILE [Suspect]
     Active Substance: FLUOROURACIL
     Indication: ANAL CANCER
     Dosage: UNK
     Route: 042
     Dates: start: 20190909, end: 20191113
  11. SPIRIVA RESPIMAT [Concomitant]
     Active Substance: TIOTROPIUM BROMIDE
     Indication: ASTHMA
     Dosage: 5 ?G, QD
     Route: 055
  12. DEROXAT [Suspect]
     Active Substance: PAROXETINE HYDROCHLORIDE
     Indication: PRODUCT USED FOR UNKNOWN INDICATION
     Dosage: 20 MG, QD
     Route: 048
  13. INNOVAIR [Concomitant]
     Active Substance: BECLOMETHASONE DIPROPIONATE\FORMOTEROL
     Indication: ASTHMA
     Dosage: 400 ?G, QD
     Route: 055
  14. BACTRIM [Concomitant]
     Active Substance: SULFAMETHOXAZOLE\TRIMETHOPRIM
     Indication: PNEUMOCYSTIS JIROVECII PNEUMONIA
     Dosage: 1600 MG, QD
     Route: 042
     Dates: start: 20200114, end: 20200115
  15. ZESTRIL [Concomitant]
     Active Substance: LISINOPRIL
     Indication: HYPERTENSION
     Dosage: 10 MG, QD
     Route: 048

REACTIONS (2)
  - Drug interaction [Unknown]
  - Pulmonary alveolar haemorrhage [Recovered/Resolved]

NARRATIVE: CASE EVENT DATE: 20190115
